FAERS Safety Report 9033170 (Version 4)
Quarter: 2013Q3

REPORT INFORMATION
  Report Type: Spontaneous
  Country: IT (occurrence: IT)
  Receive Date: 20130128
  Receipt Date: 20130924
  Transmission Date: 20140515
  Serious: Yes (Hospitalization)
  Sender: FDA-Public Use
  Company Number: IT-ROCHE-1181923

PATIENT
  Age: 37 Year
  Sex: Male

DRUGS (8)
  1. MABTHERA [Suspect]
     Indication: B-CELL LYMPHOMA
     Route: 042
     Dates: start: 20120927, end: 20130104
  2. MABTHERA [Suspect]
     Route: 042
     Dates: start: 20130820, end: 20130820
  3. CYCLOPHOSPHAMIDE [Concomitant]
     Route: 042
     Dates: start: 20120919, end: 20130104
  4. VINCRISTINE SULFATE [Concomitant]
     Route: 042
     Dates: start: 20120919, end: 20130104
  5. DOXORUBICIN [Concomitant]
     Route: 042
     Dates: start: 20120919, end: 20130104
  6. ETOPOSIDE [Concomitant]
     Indication: NON-HODGKIN^S LYMPHOMA
     Route: 042
     Dates: start: 20130817, end: 20130819
  7. IFOSFAMIDE [Concomitant]
     Indication: NON-HODGKIN^S LYMPHOMA
     Route: 065
     Dates: start: 20130818, end: 20130818
  8. CARBOPLATIN [Concomitant]
     Indication: NON-HODGKIN^S LYMPHOMA
     Route: 042
     Dates: start: 20130818, end: 20130818

REACTIONS (4)
  - Chills [Recovered/Resolved]
  - Hypotension [Recovered/Resolved]
  - Rash [Recovered/Resolved]
  - Throat tightness [Recovered/Resolved]
